FAERS Safety Report 10171098 (Version 1)
Quarter: 2014Q2

REPORT INFORMATION
  Report Type: Spontaneous
  Country: US (occurrence: None)
  Receive Date: 20140513
  Receipt Date: 20140513
  Transmission Date: 20141212
  Serious: Yes (Disabling, Other)
  Sender: FDA-Public Use
  Company Number: None

PATIENT
  Age: 37 Year
  Sex: Female
  Weight: 65.77 kg

DRUGS (1)
  1. PARAGARD [Suspect]
     Indication: CONTRACEPTION
     Dates: start: 20081201, end: 20130604

REACTIONS (13)
  - Insomnia [None]
  - Myalgia [None]
  - Weight increased [None]
  - Weight loss poor [None]
  - Hypertension [None]
  - Asthenia [None]
  - Back pain [None]
  - Abdominal distension [None]
  - Anxiety [None]
  - Learning disability [None]
  - Dysgeusia [None]
  - Headache [None]
  - Disturbance in attention [None]
